FAERS Safety Report 11496251 (Version 6)
Quarter: 2015Q4

REPORT INFORMATION
  Report Type: Spontaneous
  Country: US (occurrence: US)
  Receive Date: 20150911
  Receipt Date: 20151130
  Transmission Date: 20160304
  Serious: Yes (Death, Hospitalization)
  Sender: FDA-Public Use
  Company Number: US-ACTELION-A-NJ2015-123702

PATIENT
  Age: 63 Year
  Sex: Female

DRUGS (3)
  1. REMODULIN [Concomitant]
     Active Substance: TREPROSTINIL
     Dosage: 20 NG/KG, PER MIN
  2. OPSUMIT [Suspect]
     Active Substance: MACITENTAN
     Indication: PULMONARY HYPERTENSION
     Dosage: 10 MG, QD
     Route: 048
     Dates: start: 20150121, end: 20151020
  3. SILDENAFIL. [Concomitant]
     Active Substance: SILDENAFIL
     Dosage: 40 MG, TID

REACTIONS (16)
  - Disease progression [Fatal]
  - Fluid overload [Unknown]
  - Oedema peripheral [Recovering/Resolving]
  - Cushingoid [Unknown]
  - Hypotension [Unknown]
  - Generalised oedema [Unknown]
  - Pulmonary oedema [Unknown]
  - Cardiac failure congestive [Unknown]
  - Therapy change [Unknown]
  - Pulmonary arterial hypertension [Fatal]
  - Clostridium difficile colitis [Recovered/Resolved]
  - Dyspnoea [Unknown]
  - Hypoxia [Unknown]
  - Asthenia [Unknown]
  - Right ventricular failure [Recovering/Resolving]
  - Chronic respiratory failure [Unknown]
